FAERS Safety Report 9343492 (Version 1)
Quarter: 2013Q2

REPORT INFORMATION
  Report Type: Spontaneous
  Country: US (occurrence: US)
  Receive Date: 20130612
  Receipt Date: 20130612
  Transmission Date: 20140414
  Serious: No
  Sender: FDA-Public Use
  Company Number: US-BIOGENIDEC-2013BI051410

PATIENT
  Age: 51 Year
  Sex: Male

DRUGS (13)
  1. AVONEX [Suspect]
     Indication: MULTIPLE SCLEROSIS
     Route: 030
     Dates: start: 20110303, end: 2012
  2. AVONEX [Suspect]
     Indication: MULTIPLE SCLEROSIS
     Route: 030
     Dates: start: 2012
  3. DIOVAN [Concomitant]
     Indication: HYPERTENSION
  4. APRESOLINE [Concomitant]
     Indication: HYPERTENSION
     Dates: start: 201108
  5. LAMICTAL [Concomitant]
     Indication: DEPRESSION
     Dates: start: 201112
  6. LAMICTAL [Concomitant]
     Indication: ANXIETY
     Dates: start: 201112
  7. PROCARDIA [Concomitant]
     Indication: HYPERTENSION
     Dates: start: 201106
  8. CYMBALTA [Concomitant]
     Indication: DEPRESSION
  9. CYMBALTA [Concomitant]
     Indication: ANXIETY
  10. CLONOPIN [Concomitant]
     Indication: DEPRESSION
  11. CLONOPIN [Concomitant]
     Indication: ANXIETY
  12. LEXAPRO [Concomitant]
     Indication: DEPRESSION
  13. LEXAPRO [Concomitant]
     Indication: ANXIETY

REACTIONS (6)
  - Migraine [Recovered/Resolved]
  - Amnesia [Not Recovered/Not Resolved]
  - Back pain [Recovered/Resolved]
  - Myalgia [Recovered/Resolved]
  - Headache [Recovered/Resolved]
  - Flushing [Recovered/Resolved]
